FAERS Safety Report 5061602-5 (Version None)
Quarter: 2006Q3

REPORT INFORMATION
  Report Type: 
  Country: None (occurrence: None)
  Receive Date: 20060721
  Receipt Date: 20060706
  Transmission Date: 20061208
  Serious: Yes (Hospitalization)
  Sender: FDA-Public Use
  Company Number: DSA_28407_2006

PATIENT
  Age: 52 Year
  Sex: Male

DRUGS (4)
  1. ATIVAN [Suspect]
     Indication: MOOD ALTERED
     Dosage: DF PO
     Route: 048
  2. KEPPRA [Concomitant]
  3. DECADRON /00016001/ [Concomitant]
  4. AMBIEN [Concomitant]

REACTIONS (17)
  - ABNORMAL BEHAVIOUR [None]
  - AGGRESSION [None]
  - CONVULSION [None]
  - DEPRESSED LEVEL OF CONSCIOUSNESS [None]
  - EXCESSIVE EYE BLINKING [None]
  - FACIAL PARESIS [None]
  - FATIGUE [None]
  - GERSTMANN'S SYNDROME [None]
  - INAPPROPRIATE SCHEDULE OF DRUG ADMINISTRATION [None]
  - LETHARGY [None]
  - MOOD ALTERED [None]
  - MUSCULOSKELETAL DISORDER [None]
  - NEOPLASM PROGRESSION [None]
  - NUCLEAR MAGNETIC RESONANCE IMAGING BRAIN ABNORMAL [None]
  - PERSONALITY DISORDER [None]
  - PSYCHOTIC DISORDER [None]
  - SPEECH DISORDER [None]
